FAERS Safety Report 10554200 (Version 2)
Quarter: 2014Q4

REPORT INFORMATION
  Report Type: Spontaneous
  Country: US (occurrence: US)
  Receive Date: 20141030
  Receipt Date: 20141030
  Transmission Date: 20150529
  Serious: Yes (Hospitalization, Other)
  Sender: FDA-Public Use
  Company Number: US-GLAXOSMITHKLINE-A0832068A

PATIENT
  Age: 48 Year
  Sex: Female
  Weight: 115.5 kg

DRUGS (6)
  1. COZAAR [Concomitant]
     Active Substance: LOSARTAN POTASSIUM
  2. MICRONASE [Concomitant]
     Active Substance: GLYBURIDE
     Dates: end: 200506
  3. DILTIAZEM [Concomitant]
     Active Substance: DILTIAZEM
  4. DAYPRO [Concomitant]
     Active Substance: OXAPROZIN
  5. PRAVACHOL [Concomitant]
     Active Substance: PRAVASTATIN SODIUM
  6. AVANDIA [Suspect]
     Active Substance: ROSIGLITAZONE MALEATE
     Indication: TYPE 2 DIABETES MELLITUS
     Dosage: 4 MG, UNK
     Route: 048
     Dates: start: 200301, end: 200506

REACTIONS (2)
  - Cardiac failure congestive [Not Recovered/Not Resolved]
  - Scar [Unknown]

NARRATIVE: CASE EVENT DATE: 200506
